FAERS Safety Report 5943799-5 (Version None)
Quarter: 2008Q4

REPORT INFORMATION
  Report Type: 
  Country: None (occurrence: None)
  Receive Date: 20081106
  Receipt Date: 20080908
  Transmission Date: 20090506
  Serious: No
  Sender: FDA-Public Use
  Company Number: US-BAYER-200832757NA

PATIENT
  Age: 34 Year
  Sex: Female
  Weight: 53 kg

DRUGS (3)
  1. MAGNEVIST [Suspect]
     Indication: NUCLEAR MAGNETIC RESONANCE IMAGING
     Dosage: TOTAL DAILY DOSE: 20 ML  UNIT DOSE: 100 ML
     Route: 042
     Dates: start: 20080807, end: 20080807
  2. MAGNEVIST [Suspect]
     Dosage: TOTAL DAILY DOSE: 30 ML  UNIT DOSE: 100 ML
     Route: 042
     Dates: start: 20080819, end: 20080819
  3. PREDNISONE TAB [Concomitant]
     Indication: PREMEDICATION
     Dosage: AS USED: 40 MG
     Route: 048
     Dates: start: 20080818, end: 20080819

REACTIONS (3)
  - FEELING HOT [None]
  - HYPOAESTHESIA ORAL [None]
  - URTICARIA [None]
